FAERS Safety Report 5179476-0 (Version None)
Quarter: 2006Q4

REPORT INFORMATION
  Report Type: 
  Country: None (occurrence: None)
  Receive Date: 20061211
  Receipt Date: 20061130
  Transmission Date: 20070319
  Serious: Yes (Other)
  Sender: FDA-Public Use
  Company Number: HQWYE354120OCT06

PATIENT
  Age: 57 Year
  Sex: Female

DRUGS (16)
  1. PRIMAXIN [Suspect]
     Indication: PNEUMONIA
     Dosage: 1 G 1X PER 8 HR, INTRAVENOUS
     Route: 042
     Dates: start: 20060613, end: 20060621
  2. PRIMAXIN [Suspect]
     Indication: STAPHYLOCOCCAL INFECTION
     Dosage: 1 G 1X PER 8 HR, INTRAVENOUS
     Route: 042
     Dates: start: 20060613, end: 20060621
  3. UMULINE (INSULIN HUMAN ZINC SUSPENSION) [Concomitant]
  4. HEPARIN [Concomitant]
  5. FENTANYL [Concomitant]
  6. LASIX [Concomitant]
  7. ACETAMINOPHEN [Concomitant]
  8. ATARAX [Concomitant]
  9. FERROUS SULFATE TAB [Concomitant]
  10. ACUPAN [Concomitant]
  11. SYNACTHENE (TETRACOSACTIDE) [Concomitant]
  12. HYPNOMIDATE [Concomitant]
  13. HYPNOVEL (MIDAZOLAM HYDROCHLORIDE) [Concomitant]
  14. LEVOTHYROXINE SODIUM [Concomitant]
  15. ERYTHROMYCIN [Concomitant]
  16. GALENIC/AMOXICILLIN/CLAVULNIC ACID [Concomitant]

REACTIONS (2)
  - ESCHERICHIA URINARY TRACT INFECTION [None]
  - PNEUMONIA [None]
